FAERS Safety Report 8557859 (Version 2)
Quarter: 2012Q4

REPORT INFORMATION
  Report Type: 
  Country: US (occurrence: US)
  Receive Date: 20120511
  Receipt Date: 20121104
  Transmission Date: 20130627
  Serious: Yes (Other)
  Sender: FDA-Public Use
  Company Number: PHEH2012US009863

PATIENT
  Age: 70 Year
  Sex: Male

DRUGS (9)
  1. SANDOSTATIN LAR DEPOT [Suspect]
     Indication: ACROMEGALY
     Dosage: 40 mg, UNK
     Route: 030
     Dates: start: 20090520, end: 20120504
  2. SANDOSTATIN LAR DEPOT [Suspect]
     Dosage: 30 mg, of 4 weeks
     Route: 030
  3. EXFORGE [Concomitant]
     Dosage: 10/320 mg, daily
     Route: 048
  4. VITAMIN B COMPLEX [Concomitant]
     Dosage: UNK UKN, QD
     Route: 048
  5. FLOMAX [Concomitant]
     Dosage: 0.4 mg, daily
     Route: 048
  6. VITAMIN D [Concomitant]
     Dosage: UNK UKN, UNK
     Route: 048
  7. VITAMIN D [Concomitant]
     Dosage: 400 IU, QD
     Route: 048
  8. ALEVE [Concomitant]
     Dosage: 220 mg, PRN
     Route: 048
  9. CENTRUM SILVER [Concomitant]
     Dosage: UNK UKN, QD
     Route: 048

REACTIONS (3)
  - Malignant melanoma [Unknown]
  - Movement disorder [Unknown]
  - Arthralgia [Not Recovered/Not Resolved]
